FAERS Safety Report 9825479 (Version 2)
Quarter: 2014Q1

REPORT INFORMATION
  Report Type: Spontaneous
  Country: US (occurrence: US)
  Receive Date: 20140117
  Receipt Date: 20140219
  Transmission Date: 20141002
  Serious: No
  Sender: FDA-Public Use
  Company Number: US-PFIZER INC-2014011705

PATIENT
  Sex: Female

DRUGS (1)
  1. PROTONIX [Suspect]
     Dosage: 40 MG, UNK

REACTIONS (4)
  - Functional gastrointestinal disorder [Unknown]
  - Hernia [Unknown]
  - Musculoskeletal discomfort [Unknown]
  - Dizziness [Unknown]
